FAERS Safety Report 24559187 (Version 1)
Quarter: 2024Q4

REPORT INFORMATION
  Report Type: Spontaneous
  Country: US (occurrence: US)
  Receive Date: 20241029
  Receipt Date: 20241029
  Transmission Date: 20250115
  Serious: Yes (Other)
  Sender: AUROBINDO
  Company Number: US-MLMSERVICE-20240923-PI197155-00246-1

PATIENT
  Age: 6 Decade
  Sex: Male

DRUGS (3)
  1. TAMSULOSIN [Suspect]
     Active Substance: TAMSULOSIN
     Indication: Nocturia
     Dosage: UNK
     Route: 065
  2. TAMSULOSIN [Suspect]
     Active Substance: TAMSULOSIN
     Indication: Urine flow decreased
  3. OLANZAPINE [Suspect]
     Active Substance: OLANZAPINE
     Indication: Initial insomnia
     Dosage: 5 MILLIGRAM, ONCE A DAY
     Route: 048

REACTIONS (2)
  - Pollakiuria [Recovered/Resolved]
  - Off label use [Recovered/Resolved]
